FAERS Safety Report 8677014 (Version 3)
Quarter: 2012Q4

REPORT INFORMATION
  Report Type: 
  Country: US (occurrence: US)
  Receive Date: 20120723
  Receipt Date: 20120905
  Transmission Date: 20130627
  Serious: Yes (Other)
  Sender: FDA-Public Use
  Company Number: US-JNJFOC-20120706973

PATIENT
  Sex: Female

DRUGS (16)
  1. STELARA [Suspect]
     Indication: PSORIASIS
     Route: 058
     Dates: start: 20110118
  2. CLOBETASOL [Concomitant]
     Route: 065
  3. PREDNISONE [Concomitant]
     Route: 065
  4. SIMPONI [Concomitant]
     Route: 065
  5. CYCLOSPORIN [Concomitant]
     Route: 065
  6. ANTACID [Concomitant]
     Route: 065
  7. ESTRADIOL [Concomitant]
     Route: 065
  8. MULTIVITAMINS [Concomitant]
     Route: 065
  9. MILK THISTLE [Concomitant]
     Route: 065
  10. TRIAMCINOLONE [Concomitant]
     Route: 065
  11. FISH OIL [Concomitant]
     Route: 065
  12. FLAXSEED [Concomitant]
     Route: 065
  13. HERBAL MEDICINES [Concomitant]
     Route: 065
  14. SPIRULINA [Concomitant]
     Route: 065
  15. PAPAYA ENZYMES [Concomitant]
     Route: 065
  16. UNKNOWN MEDICATION [Concomitant]
     Route: 065

REACTIONS (2)
  - Hepatic cirrhosis [Unknown]
  - Thrombocytopenia [Unknown]
